FAERS Safety Report 15742086 (Version 1)
Quarter: 2018Q4

REPORT INFORMATION
  Report Type: Report from Study
  Country: US (occurrence: US)
  Receive Date: 20181219
  Receipt Date: 20181219
  Transmission Date: 20190205
  Serious: Yes (Other)
  Sender: FDA-Public Use
  Company Number: US-TAKEDA-2018TUS035776

PATIENT
  Sex: Male

DRUGS (1)
  1. PONATINIB [Suspect]
     Active Substance: PONATINIB
     Indication: CHRONIC MYELOID LEUKAEMIA
     Dosage: 15 MG, QD
     Route: 048
     Dates: start: 20140501

REACTIONS (6)
  - Road traffic accident [Unknown]
  - Stress [Unknown]
  - Decreased activity [Unknown]
  - Conjunctival hyperaemia [Unknown]
  - Intervertebral disc protrusion [Unknown]
  - Weight decreased [Unknown]
